FAERS Safety Report 6707458-3 (Version None)
Quarter: 2010Q2

REPORT INFORMATION
  Report Type: 
  Country: None (occurrence: None)
  Receive Date: 20100503
  Receipt Date: 20090916
  Transmission Date: 20101027
  Serious: No
  Sender: FDA-Public Use
  Company Number: US-ASTRAZENECA-2009SE13698

PATIENT
  Age: 79 Year
  Sex: Female

DRUGS (9)
  1. NEXIUM [Suspect]
     Indication: GASTROOESOPHAGEAL REFLUX DISEASE
     Route: 048
     Dates: start: 20060101
  2. NEXIUM [Suspect]
     Route: 048
  3. BENICAR [Concomitant]
  4. ATENOLOL [Concomitant]
  5. HYDROCHLOROTHIAZIDE [Concomitant]
  6. SYNTHROID [Concomitant]
  7. PREMARIN [Concomitant]
  8. ZOCOR [Concomitant]
  9. PREDNISONE [Concomitant]

REACTIONS (3)
  - GASTRIC POLYPS [None]
  - OESOPHAGEAL DILATATION [None]
  - REGURGITATION [None]
